FAERS Safety Report 7389325-8 (Version None)
Quarter: 2011Q2

REPORT INFORMATION
  Report Type: 
  Country: None (occurrence: None)
  Receive Date: 20110401
  Receipt Date: 20101130
  Transmission Date: 20111010
  Serious: Yes (Hospitalization)
  Sender: FDA-Public Use
  Company Number: A0898935A

PATIENT
  Age: 57 Year
  Sex: Male

DRUGS (1)
  1. AVANDAMET [Suspect]
     Dosage: 4MG PER DAY
     Route: 048
     Dates: start: 20030529, end: 20041221

REACTIONS (3)
  - CORONARY ARTERY DISEASE [None]
  - CHEST PAIN [None]
  - ARTERIOSCLEROSIS [None]
